FAERS Safety Report 9792080 (Version 3)
Quarter: 2014Q1

REPORT INFORMATION
  Report Type: Report from Study
  Country: US (occurrence: US)
  Receive Date: 20140102
  Receipt Date: 20140226
  Transmission Date: 20141002
  Serious: Yes (Hospitalization, Other)
  Sender: FDA-Public Use
  Company Number: US-ALEXION-A201304545

PATIENT
  Age: 31 Year
  Sex: Female
  Weight: 90 kg

DRUGS (12)
  1. SOLIRIS [Suspect]
     Indication: PAROXYSMAL NOCTURNAL HAEMOGLOBINURIA
     Dosage: 900 MG, Q2W
     Route: 042
     Dates: start: 2007
  2. FOLATE [Concomitant]
     Indication: SUPPLEMENTATION THERAPY
     Dosage: 800 ?G, QD
     Route: 048
  3. IRON [Concomitant]
     Indication: SUPPLEMENTATION THERAPY
     Dosage: 65 MG, QD
     Route: 048
  4. HYDROXOCOBALAMIN [Concomitant]
     Indication: SUPPLEMENTATION THERAPY
     Dosage: 1000 ?G, QD
     Route: 048
  5. ATIVAN [Concomitant]
     Indication: NAUSEA
     Dosage: 1 MG, Q4H PRN
     Route: 048
  6. ATIVAN [Concomitant]
     Indication: VOMITING
  7. GABAPENTIN [Concomitant]
     Indication: FIBROMYALGIA
     Dosage: 400 MG, TID
     Route: 048
  8. NORCO [Concomitant]
     Indication: PAIN
     Dosage: 10/325 MG, Q4H PRN
     Route: 048
  9. LEVOTHYROXINE [Concomitant]
     Indication: THYROID THERAPY
     Dosage: 175 ?G, QD
     Route: 048
  10. COMPAZINE                          /00013302/ [Concomitant]
     Indication: NAUSEA
     Dosage: 10 MG, Q6H PRN
     Route: 048
  11. COMPAZINE                          /00013302/ [Concomitant]
     Indication: VOMITING
  12. ULTRAM                             /00599202/ [Concomitant]
     Indication: PAIN
     Dosage: 50 MG, Q4H PRN
     Route: 048

REACTIONS (2)
  - Breast abscess [Recovered/Resolved]
  - Streptococcal bacteraemia [Recovered/Resolved]
